FAERS Safety Report 8806457 (Version 1)
Quarter: 2012Q4

REPORT INFORMATION
  Report Type: Spontaneous
  Country: US (occurrence: None)
  Receive Date: 20120920
  Receipt Date: 20120920
  Transmission Date: 20130627
  Serious: No
  Sender: FDA-Public Use
  Company Number: None

PATIENT
  Age: 61 Year
  Sex: Female
  Weight: 89.36 kg

DRUGS (3)
  1. HYDROCODONE/ACETAMINOPHEN [Suspect]
     Dosage: q 6 pm pain
     Dates: start: 20110131, end: 20110630
  2. HYDROCODONE/ACETAMINOPHEN [Suspect]
     Dosage: q 6 pm pain
     Dates: start: 20110131, end: 20110630
  3. HYDROCODONE/ACETAMINOPHEN [Suspect]
     Dosage: q 6 pm pain
     Dates: start: 20110131, end: 20110630

REACTIONS (2)
  - Drug ineffective [None]
  - Product substitution issue [None]
